FAERS Safety Report 18122831 (Version 1)
Quarter: 2020Q3

REPORT INFORMATION
  Report Type: Spontaneous
  Country: JP (occurrence: JP)
  Receive Date: 20200807
  Receipt Date: 20200807
  Transmission Date: 20201103
  Serious: Yes (Life-Threatening, Hospitalization, Other)
  Sender: FDA-Public Use
  Company Number: JP-ACCORD-194382

PATIENT
  Age: 16 Year
  Sex: Male

DRUGS (14)
  1. DOXORUBICIN [Concomitant]
     Active Substance: DOXORUBICIN
     Indication: METASTASES TO PELVIS
  2. CYCLOPHOSPHAMIDE. [Suspect]
     Active Substance: CYCLOPHOSPHAMIDE
     Indication: ALVEOLAR RHABDOMYOSARCOMA
  3. DACTINOMYCIN [Concomitant]
     Active Substance: DACTINOMYCIN
     Indication: ALVEOLAR RHABDOMYOSARCOMA
  4. IFOSFAMIDE. [Concomitant]
     Active Substance: IFOSFAMIDE
     Indication: ALVEOLAR RHABDOMYOSARCOMA
  5. IRINOTECAN [Concomitant]
     Active Substance: IRINOTECAN
     Indication: METASTASES TO PELVIS
  6. ETOPOSIDE. [Suspect]
     Active Substance: ETOPOSIDE
     Indication: ALVEOLAR RHABDOMYOSARCOMA
  7. CYCLOPHOSPHAMIDE/CYCLOPHOSPHAMIDE MONOHYDRATE [Suspect]
     Active Substance: CYCLOPHOSPHAMIDE
     Indication: METASTASES TO PELVIS
  8. DACTINOMYCIN [Concomitant]
     Active Substance: DACTINOMYCIN
     Indication: METASTASES TO PELVIS
  9. ETOPOSIDE. [Suspect]
     Active Substance: ETOPOSIDE
     Indication: METASTASES TO PELVIS
  10. IRINOTECAN [Concomitant]
     Active Substance: IRINOTECAN
     Indication: ALVEOLAR RHABDOMYOSARCOMA
  11. DOXORUBICIN [Concomitant]
     Active Substance: DOXORUBICIN
     Indication: ALVEOLAR RHABDOMYOSARCOMA
  12. IFOSFAMIDE. [Concomitant]
     Active Substance: IFOSFAMIDE
     Indication: METASTASES TO PELVIS
  13. VINCRISTINE [Concomitant]
     Active Substance: VINCRISTINE
     Indication: METASTASES TO PELVIS
  14. VINCRISTINE [Concomitant]
     Active Substance: VINCRISTINE
     Indication: ALVEOLAR RHABDOMYOSARCOMA

REACTIONS (3)
  - Acute myeloid leukaemia recurrent [Recovering/Resolving]
  - Leukaemia [Recovering/Resolving]
  - Acute myeloid leukaemia [Recovered/Resolved]
